FAERS Safety Report 24860480 (Version 1)
Quarter: 2025Q1

REPORT INFORMATION
  Report Type: Spontaneous
  Country: FR (occurrence: FR)
  Receive Date: 20250120
  Receipt Date: 20250120
  Transmission Date: 20250409
  Serious: Yes (Hospitalization)
  Sender: CHEPLAPHARM
  Company Number: None

PATIENT
  Age: 89 Year
  Sex: Female
  Weight: 58 kg

DRUGS (6)
  1. HYDROXYUREA [Suspect]
     Active Substance: HYDROXYUREA
     Indication: Essential thrombocythaemia
     Dosage: DAILY DOSE: 500 MILLIGRAM
     Route: 048
     Dates: start: 20230615, end: 20240705
  2. BIMATOPROST\TIMOLOL [Concomitant]
     Active Substance: BIMATOPROST\TIMOLOL
     Dosage: 0.3MG/5MG/ML EYE DROPS 3ML 1 DROP IN THE EVENING?DAILY DOSE: 1 DROP
  3. KARDEGIC [Concomitant]
     Active Substance: ASPIRIN DL-LYSINE
     Dosage: 75MG 1 TABLET MORNING?DAILY DOSE: 75 MILLIGRAM
  4. Pritor [Concomitant]
     Dosage: 40MG 1 TABLET EVENING?DAILY DOSE: 40 MILLIGRAM
  5. VERAPAMIL HYDROCHLORIDE [Concomitant]
     Active Substance: VERAPAMIL HYDROCHLORIDE
     Dosage: 240 MG MORNING?DAILY DOSE: 240 MILLIGRAM
  6. ESOMEPRAZOLE [Concomitant]
     Active Substance: ESOMEPRAZOLE
     Dosage: 40 MG EVENING?DAILY DOSE: 40 MILLIGRAM

REACTIONS (4)
  - Oral disorder [Recovered/Resolved]
  - Bicytopenia [Recovered/Resolved]
  - Nephrolithiasis [Unknown]
  - Klebsiella infection [Unknown]

NARRATIVE: CASE EVENT DATE: 20240621
